FAERS Safety Report 18660846 (Version 1)
Quarter: 2020Q4

REPORT INFORMATION
  Report Type: Spontaneous
  Country: US (occurrence: US)
  Receive Date: 20201224
  Receipt Date: 20201224
  Transmission Date: 20210114
  Serious: Yes (Life-Threatening)
  Sender: FDA-Public Use
  Company Number: None

PATIENT
  Age: 95 Year
  Sex: Male
  Weight: 63.09 kg

DRUGS (2)
  1. CASIRIVIMAB-IMDEVIMAB [Suspect]
     Active Substance: CASIRIVIMAB\IMDEVIMAB
     Indication: COVID-19
     Dosage: ?          OTHER FREQUENCY:ONCE;?
     Route: 042
     Dates: start: 20201223, end: 20201223
  2. REGENERON [Concomitant]
     Active Substance: UNSPECIFIED INGREDIENT
     Dates: start: 20201223, end: 20201224

REACTIONS (5)
  - Cough [None]
  - Pyrexia [None]
  - Unresponsive to stimuli [None]
  - Oxygen saturation decreased [None]
  - Skin discolouration [None]

NARRATIVE: CASE EVENT DATE: 20201223
